FAERS Safety Report 10345232 (Version 2)
Quarter: 2014Q3

REPORT INFORMATION
  Report Type: Other
  Country: US (occurrence: US)
  Receive Date: 20140728
  Receipt Date: 20140728
  Transmission Date: 20150326
  Serious: Yes (Hospitalization, Other)
  Sender: FDA-Public Use
  Company Number: US-GSKPPD-2014GSK000859

PATIENT
  Age: 59 Year
  Sex: Male

DRUGS (3)
  1. MONOPRIL [Concomitant]
     Active Substance: FOSINOPRIL SODIUM
     Dosage: QD
  2. ASPIRIN. [Concomitant]
     Active Substance: ASPIRIN
     Dosage: QD
  3. AVANDIA [Suspect]
     Active Substance: ROSIGLITAZONE MALEATE
     Indication: DIABETES MELLITUS
     Dosage: DATES OF AVANDIA USE COULD NOT BE CONFIRMED IN RECORDS REVIEWED.
     Route: 048

REACTIONS (1)
  - Coronary artery disease [Recovered/Resolved]

NARRATIVE: CASE EVENT DATE: 20040421
